FAERS Safety Report 24939628 (Version 1)
Quarter: 2025Q1

REPORT INFORMATION
  Report Type: Spontaneous
  Country: US (occurrence: US)
  Receive Date: 20250207
  Receipt Date: 20250207
  Transmission Date: 20250408
  Serious: Yes (Hospitalization, Other)
  Sender: BRISTOL-MYERS SQUIBB COMPANY
  Company Number: US-BRISTOL-MYERS SQUIBB COMPANY-2025-014902

PATIENT
  Age: 58 Year
  Sex: Male

DRUGS (1)
  1. SOTYKTU [Suspect]
     Active Substance: DEUCRAVACITINIB
     Indication: Psoriasis

REACTIONS (9)
  - Post procedural infection [Unknown]
  - Arthropathy [Unknown]
  - Night sweats [Unknown]
  - Benign prostatic hyperplasia [Unknown]
  - Urinary retention postoperative [Unknown]
  - Dyslipidaemia [Unknown]
  - Essential hypertension [Unknown]
  - Post procedural complication [Unknown]
  - Staphylococcal abscess [Unknown]

NARRATIVE: CASE EVENT DATE: 20230921
